FAERS Safety Report 16561751 (Version 3)
Quarter: 2019Q4

REPORT INFORMATION
  Report Type: Spontaneous
  Country: FR (occurrence: FR)
  Receive Date: 20190711
  Receipt Date: 20191213
  Transmission Date: 20200122
  Serious: Yes (Death, Hospitalization, Other)
  Sender: FDA-Public Use
  Company Number: FR-PFIZER INC-2019293775

PATIENT
  Sex: Male
  Weight: .4 kg

DRUGS (17)
  1. KARDEGIC [Suspect]
     Active Substance: ASPIRIN DL-LYSINE
     Indication: PROPHYLAXIS
     Dosage: 75 MG, 1X/DAY
     Route: 064
     Dates: start: 20161126
  2. CORTANCYL [Suspect]
     Active Substance: PREDNISONE
     Dosage: 20 MG, 1X/DAY
     Route: 064
  3. SPECIAFOLDINE [Suspect]
     Active Substance: FOLIC ACID
     Indication: FOETAL EXPOSURE DURING PREGNANCY
  4. PANTOPRAZOLE [Suspect]
     Active Substance: PANTOPRAZOLE
     Indication: PROPHYLAXIS AGAINST GASTROINTESTINAL ULCER
     Dosage: 20 MG, 1X/DAY
     Route: 064
     Dates: start: 20161121
  5. ADRENALINE [Concomitant]
     Active Substance: EPINEPHRINE
     Indication: FOETAL EXPOSURE DURING PREGNANCY
     Dosage: UNK
     Route: 064
  6. MABTHERA [Suspect]
     Active Substance: RITUXIMAB
     Indication: THROMBOTIC THROMBOCYTOPENIC PURPURA
     Dosage: 1000 MG, 1X/DAY
     Route: 064
     Dates: start: 20161207, end: 20161207
  7. CORTICOSTEROID NOS [Concomitant]
     Active Substance: CORTICOSTEROID NOS
     Dosage: 20 MG, 1X/DAY
     Route: 064
  8. MABTHERA [Suspect]
     Active Substance: RITUXIMAB
     Indication: FOETAL EXPOSURE DURING PREGNANCY
  9. CORTANCYL [Suspect]
     Active Substance: PREDNISONE
     Indication: FOETAL EXPOSURE DURING PREGNANCY
     Dosage: 80 MG, 1X/DAY
     Route: 064
     Dates: start: 201701
  10. SPECIAFOLDINE [Suspect]
     Active Substance: FOLIC ACID
     Indication: VITAMIN SUPPLEMENTATION
     Dosage: 5 MG, 1X/DAY
     Route: 064
     Dates: start: 20161121
  11. KARDEGIC [Suspect]
     Active Substance: ASPIRIN DL-LYSINE
     Indication: FOETAL EXPOSURE DURING PREGNANCY
  12. ORACILLINE [Suspect]
     Active Substance: PENICILLIN V
     Indication: ANTIBIOTIC PROPHYLAXIS
     Dosage: UNK, 1X/DAY
     Route: 064
     Dates: start: 20161220
  13. ORACILLINE [Suspect]
     Active Substance: PENICILLIN V
     Indication: FOETAL EXPOSURE DURING PREGNANCY
  14. CORTICOSTEROID NOS [Concomitant]
     Active Substance: CORTICOSTEROID NOS
     Dosage: 80 MG, UNK
     Route: 064
  15. PANTOPRAZOLE [Suspect]
     Active Substance: PANTOPRAZOLE
     Indication: FOETAL EXPOSURE DURING PREGNANCY
  16. CORTANCYL [Suspect]
     Active Substance: PREDNISONE
     Indication: THROMBOTIC THROMBOCYTOPENIC PURPURA
     Dosage: 80 MG, 1X/DAY
     Route: 064
     Dates: start: 20161118
  17. CORTICOSTEROID NOS [Concomitant]
     Active Substance: CORTICOSTEROID NOS
     Indication: FOETAL EXPOSURE DURING PREGNANCY
     Dosage: 80 MG, 1X/DAY
     Route: 064

REACTIONS (8)
  - Foetal growth restriction [Fatal]
  - Low birth weight baby [Fatal]
  - Premature baby [Fatal]
  - Foetal exposure during pregnancy [Unknown]
  - Exposure during pregnancy [Unknown]
  - Premature delivery [Unknown]
  - Maternal exposure during pregnancy [Fatal]
  - Multiple organ dysfunction syndrome [Fatal]

NARRATIVE: CASE EVENT DATE: 20161220
